FAERS Safety Report 8071941-1 (Version None)
Quarter: 2012Q1

REPORT INFORMATION
  Report Type: 
  Country: None (occurrence: None)
  Receive Date: 20120124
  Receipt Date: 20120124
  Transmission Date: 20120608
  Serious: Yes (Hospitalization)
  Sender: FDA-Public Use
  Company Number: None

PATIENT
  Sex: Male
  Weight: 65.318 kg

DRUGS (3)
  1. YERVOY [Suspect]
     Indication: MALIGNANT MELANOMA
     Dosage: 246MG IV EVERY 3WKS X 3
     Route: 042
     Dates: start: 20110602
  2. YERVOY [Suspect]
     Indication: MALIGNANT MELANOMA
     Dosage: 246MG IV EVERY 3WKS X 3
     Route: 042
     Dates: start: 20110702
  3. YERVOY [Suspect]
     Indication: MALIGNANT MELANOMA
     Dosage: 246MG IV EVERY 3WKS X 3
     Route: 042
     Dates: start: 20110802

REACTIONS (2)
  - LARGE INTESTINE PERFORATION [None]
  - ENTEROCOLITIS [None]
